FAERS Safety Report 9465316 (Version 1)
Quarter: 2013Q3

REPORT INFORMATION
  Report Type: Spontaneous
  Country: US (occurrence: US)
  Receive Date: 20130820
  Receipt Date: 20130820
  Transmission Date: 20140515
  Serious: No
  Sender: FDA-Public Use
  Company Number: US-B.I. PHARMACEUTICALS,INC./RIDGEFIELD-2013-BI-24529BP

PATIENT
  Sex: Male

DRUGS (5)
  1. MIRAPEX [Suspect]
     Indication: PARKINSON^S DISEASE
     Dosage: 4.5 MG
     Route: 048
     Dates: start: 2009, end: 2013
  2. MIRAPEX [Suspect]
     Dosage: 0.375 MG
     Route: 048
     Dates: start: 2013, end: 201306
  3. CARB LEVO [Concomitant]
     Indication: PARKINSON^S DISEASE
     Dosage: DOSE PER APPLICATION: 25MG/100MG, DAILY DOSE: 75MG/300MG
     Route: 048
  4. AZILECT [Concomitant]
     Indication: PARKINSON^S DISEASE
     Route: 048
  5. LEVOTHYROXINE [Concomitant]
     Indication: HYPOTHYROIDISM
     Route: 048

REACTIONS (3)
  - Rash [Recovered/Resolved]
  - Gait disturbance [Not Recovered/Not Resolved]
  - Drug prescribing error [Unknown]
